FAERS Safety Report 6149486-5 (Version None)
Quarter: 2009Q2

REPORT INFORMATION
  Report Type: 
  Country: None (occurrence: None)
  Receive Date: 20090409
  Receipt Date: 20090401
  Transmission Date: 20091009
  Serious: Yes (Death, Life-Threatening, Hospitalization)
  Sender: FDA-Public Use
  Company Number: JP-ROCHE-608652

PATIENT
  Sex: Female
  Weight: 35 kg

DRUGS (27)
  1. TOCILIZUMAB [Suspect]
     Indication: RHEUMATOID ARTHRITIS
     Route: 041
     Dates: start: 20081211, end: 20081211
  2. RITUXAN [Suspect]
     Indication: RHEUMATOID ARTHRITIS
     Dosage: DRUG NAME: RITUXAN INJECTION
     Route: 041
     Dates: start: 20080808, end: 20080829
  3. BACTRAMIN [Suspect]
     Indication: PNEUMOCYSTIS JIROVECI PNEUMONIA
     Route: 041
     Dates: start: 20090116
  4. GLOVENIN [Suspect]
     Indication: BLOOD IMMUNOGLOBULIN G DECREASED
     Dosage: ROUTE: INJECTABLE (NOT OTHERWISE SPECIFIED)
     Route: 050
     Dates: start: 20090106, end: 20090109
  5. REMICADE [Suspect]
     Indication: RHEUMATOID ARTHRITIS
     Route: 041
     Dates: start: 20070416, end: 20080206
  6. ENBREL [Suspect]
     Indication: RHEUMATOID ARTHRITIS
     Route: 058
     Dates: start: 20051031, end: 20070413
  7. BENAMBAX [Suspect]
     Dosage: NOTE: UNCERTAINITY, ROUTE: INJECTABLE NOS
     Route: 050
     Dates: start: 20090114, end: 20090115
  8. PENTAZOCINE LACTATE [Concomitant]
     Dosage: ROUTE: INJECTABLE (NOT OTHERWISE SPECIFIED)
     Route: 050
     Dates: start: 20081201
  9. ISCOTIN [Concomitant]
     Route: 048
     Dates: end: 20090113
  10. ARAVA [Concomitant]
     Route: 048
     Dates: end: 20081223
  11. PREDNISOLONE [Concomitant]
     Route: 048
     Dates: end: 20090121
  12. WARFARIN [Concomitant]
     Route: 048
     Dates: end: 20090121
  13. WARFARIN [Concomitant]
     Route: 048
  14. ACTONEL [Concomitant]
     Dosage: DRUG REPORTED: ACTONEL(SODIUM RISEDRONATE HYDRATE)
     Route: 048
     Dates: end: 20090121
  15. VOLTAREN [Concomitant]
     Route: 048
     Dates: end: 20090121
  16. CLARITH [Concomitant]
     Route: 048
     Dates: end: 20090121
  17. PYDOXAL [Concomitant]
     Route: 048
     Dates: end: 20090121
  18. TAKEPRON [Concomitant]
     Route: 048
     Dates: end: 20090121
  19. MAGLAX [Concomitant]
     Route: 048
     Dates: end: 20090121
  20. MIYA BM [Concomitant]
     Dosage: DRUG REPORTED: MIYA BM (CLOSTRIDIUM BUTYRICUM)
     Route: 048
     Dates: end: 20090121
  21. SIGMART [Concomitant]
     Route: 048
     Dates: end: 20090121
  22. MUCOSOLVAN [Concomitant]
     Route: 048
     Dates: end: 20090121
  23. ELCITONIN [Concomitant]
     Dosage: ROUTE: INJECTABLE NOS, NOTE UNCERTAINITY
     Route: 050
     Dates: start: 20081201
  24. CLOSTRIDIUM BUTYRICUM [Concomitant]
  25. WARFARIN POTASSIUM [Concomitant]
     Route: 048
     Dates: end: 20090121
  26. LEFLUNOMIDE [Concomitant]
  27. LASIX [Concomitant]
     Route: 048
     Dates: start: 20090109

REACTIONS (7)
  - BLOOD IMMUNOGLOBULIN G DECREASED [None]
  - CARDIAC FAILURE [None]
  - NAUSEA [None]
  - PLATELET COUNT DECREASED [None]
  - PNEUMOCYSTIS JIROVECI PNEUMONIA [None]
  - RENAL FAILURE [None]
  - WHITE BLOOD CELL COUNT DECREASED [None]
